FAERS Safety Report 6204086-3 (Version None)
Quarter: 2009Q2

REPORT INFORMATION
  Report Type: 
  Country: None (occurrence: None)
  Receive Date: 20090527
  Receipt Date: 20090519
  Transmission Date: 20091009
  Serious: Yes (Hospitalization)
  Sender: FDA-Public Use
  Company Number: US-PFIZER INC-2005034658

PATIENT
  Sex: Male
  Weight: 70.31 kg

DRUGS (16)
  1. MARAVIROC [Suspect]
     Indication: HIV TEST POSITIVE
     Dosage: UNK
     Route: 048
     Dates: start: 20050203, end: 20050713
  2. DAPSONE [Concomitant]
     Route: 048
     Dates: start: 20031105
  3. AZITHROMYCIN [Concomitant]
     Route: 048
     Dates: start: 20040129
  4. VALACICLOVIR HCL [Concomitant]
     Route: 048
     Dates: start: 20031016
  5. BUDESONIDE [Concomitant]
     Route: 055
     Dates: start: 20040601
  6. CYANOCOBALAMIN [Concomitant]
     Route: 030
     Dates: start: 20010101
  7. ITRACONAZOLE [Concomitant]
     Route: 048
     Dates: start: 20041129
  8. ALLEGRA D 24 HOUR [Concomitant]
     Route: 048
     Dates: start: 20041202
  9. TRUVODA [Concomitant]
     Route: 048
     Dates: start: 20050203
  10. NELFINAVIR MESILATE [Concomitant]
     Route: 048
     Dates: start: 20050203
  11. ENFUVIRTIDE [Concomitant]
     Route: 058
     Dates: start: 20050203
  12. MULTI-VITAMINS [Concomitant]
     Route: 048
     Dates: start: 20050127
  13. PRASTERONE [Concomitant]
     Route: 048
     Dates: start: 20050127
  14. UBIDECARENONE [Concomitant]
     Route: 048
     Dates: start: 20050127
  15. OXANDROLONE [Concomitant]
     Route: 048
     Dates: start: 20000101
  16. TESTOSTERONE CYPIONATE [Concomitant]
     Route: 061
     Dates: start: 20041202

REACTIONS (1)
  - GROIN ABSCESS [None]
